FAERS Safety Report 8543643-6 (Version None)
Quarter: 2012Q3

REPORT INFORMATION
  Report Type: 
  Country: None (occurrence: None)
  Receive Date: 20120727
  Receipt Date: 20120716
  Transmission Date: 20120928
  Serious: Yes (Hospitalization, Other)
  Sender: FDA-Public Use
  Company Number: US-PFIZER INC-2012116877

PATIENT
  Age: 68 Year
  Sex: Female
  Weight: 84 kg

DRUGS (26)
  1. CYMBALTA [Suspect]
     Indication: ANXIETY
     Dosage: UNK
     Route: 065
  2. LISINOPRIL [Concomitant]
     Dosage: UNK
  3. GABITRIL [Concomitant]
     Dosage: UNK
  4. PAXIL [Suspect]
     Indication: DEPRESSION
  5. FOSAMAX [Concomitant]
     Dosage: UNK
  6. SENNA [Concomitant]
     Dosage: UNK
  7. PAXIL [Suspect]
     Indication: ANXIETY
     Dosage: UNK
     Route: 065
  8. MULTI-VITAMINS [Concomitant]
     Dosage: UNK
  9. FENTANYL [Interacting]
     Dosage: 100 MCG, DAILY
  10. CYMBALTA [Suspect]
     Indication: DEPRESSION
  11. OMEPRAZOLE [Concomitant]
     Dosage: UNK
  12. LIPITOR [Concomitant]
     Dosage: UNK
  13. CLONAZEPAM [Concomitant]
     Dosage: UNK
  14. FENTANYL [Interacting]
     Indication: ANAESTHESIA
     Dosage: 50 MCG, DAILY
     Route: 065
  15. FENTANYL [Interacting]
     Indication: ANALGESIC THERAPY
     Dosage: 100 MCG, DAILY
     Route: 065
  16. WELLBUTRIN [Suspect]
     Indication: DEPRESSION
  17. GABAPENTIN [Concomitant]
     Dosage: UNK
  18. TRIAMTERENE AND HYDROCHLOROTHIAZIDE [Concomitant]
     Dosage: UNK
  19. CALCIUM [Concomitant]
     Dosage: UNK
  20. PROPOFOL [Concomitant]
     Dosage: 200 MG, UNK
  21. SUCCINYLCHOLINE CHLORIDE [Concomitant]
     Dosage: 120 MG, UNK
  22. WELLBUTRIN [Suspect]
     Indication: ANXIETY
     Route: 065
  23. LEVOTHYROXINE [Concomitant]
     Dosage: UNK
  24. OXYCODONE [Concomitant]
     Dosage: UNK
  25. ONDANSETRON [Interacting]
     Indication: PRODUCT USED FOR UNKNOWN INDICATION
     Dosage: 4 MG, DAILY
  26. FLUDROCORTISONE [Concomitant]
     Dosage: UNK

REACTIONS (2)
  - SEROTONIN SYNDROME [None]
  - DRUG INTERACTION [None]
